FAERS Safety Report 22666656 (Version 2)
Quarter: 2023Q4

REPORT INFORMATION
  Report Type: Spontaneous
  Country: US (occurrence: US)
  Receive Date: 20230703
  Receipt Date: 20231218
  Transmission Date: 20240109
  Serious: No
  Sender: FDA-Public Use
  Company Number: US-PFIZER INC-PV202300112830

PATIENT
  Age: 76 Year
  Sex: Female
  Weight: 80.2 kg

DRUGS (2)
  1. IBRANCE [Suspect]
     Active Substance: PALBOCICLIB
     Indication: Breast cancer metastatic
     Dosage: SWALLOW WHOLE 3 WEEK ON, ONE WEEK OFF
     Dates: start: 20221031, end: 20231204
  2. IBRANCE [Suspect]
     Active Substance: PALBOCICLIB
     Dosage: SWALLOW WHOLE 3 WEEK ON, ONE WEEK OFF
     Dates: start: 20231206

REACTIONS (1)
  - Hypoacusis [Unknown]
